FAERS Safety Report 5275321-3 (Version None)
Quarter: 2007Q1

REPORT INFORMATION
  Report Type: 
  Country: None (occurrence: None)
  Receive Date: 20070326
  Receipt Date: 20070308
  Transmission Date: 20070707
  Serious: No
  Sender: FDA-Public Use
  Company Number: GR-AVENTIS-200712490GDDC

PATIENT
  Age: 22 Year
  Sex: Female

DRUGS (1)
  1. ARAVA [Suspect]
     Indication: RHEUMATOID ARTHRITIS
     Route: 048
     Dates: start: 20060201, end: 20061201

REACTIONS (1)
  - DRUG EXPOSURE DURING PREGNANCY [None]
